FAERS Safety Report 10665598 (Version 3)
Quarter: 2015Q1

REPORT INFORMATION
  Report Type: Report from Study
  Country: BR (occurrence: BR)
  Receive Date: 20141219
  Receipt Date: 20150105
  Transmission Date: 20150720
  Serious: Yes (Hospitalization)
  Sender: FDA-Public Use
  Company Number: BR-SA-2014SA171719

PATIENT
  Sex: Male
  Weight: 89 kg

DRUGS (9)
  1. OSTEONUTRI [Concomitant]
     Indication: THYROID DISORDER
     Dates: start: 201404
  2. TRADJENTA [Concomitant]
     Active Substance: LINAGLIPTIN
     Indication: DIABETES MELLITUS MANAGEMENT
     Route: 048
     Dates: start: 201402
  3. PREDSIM [Suspect]
     Active Substance: PREDNISOLONE
     Indication: NASOPHARYNGITIS
     Route: 065
     Dates: start: 20141229
  4. VITAMIN D [Concomitant]
     Active Substance: CHOLECALCIFEROL
     Indication: VITAMIN SUPPLEMENTATION
     Dates: start: 201404
  5. LANTUS [Suspect]
     Active Substance: INSULIN GLARGINE
     Indication: TYPE 2 DIABETES MELLITUS
     Route: 058
     Dates: start: 2013
  6. LANTUS [Suspect]
     Active Substance: INSULIN GLARGINE
     Indication: TYPE 2 DIABETES MELLITUS
     Route: 058
  7. CLIKSTAR [Concomitant]
     Active Substance: CLIKSTAR
     Indication: DEVICE THERAPY
  8. LANTUS [Suspect]
     Active Substance: INSULIN GLARGINE
     Indication: TYPE 2 DIABETES MELLITUS
     Route: 065
  9. PREDSIM [Suspect]
     Active Substance: PREDNISOLONE
     Indication: PYREXIA
     Route: 065
     Dates: start: 20141229

REACTIONS (8)
  - Blood glucose decreased [Recovered/Resolved]
  - Nasopharyngitis [Recovered/Resolved]
  - Arrhythmia [Recovered/Resolved]
  - Hyperglycaemia [Recovered/Resolved]
  - Drug ineffective [Unknown]
  - Pyrexia [Recovered/Resolved]
  - Drug administration error [Unknown]
  - Syncope [Recovered/Resolved]

NARRATIVE: CASE EVENT DATE: 20141129
